FAERS Safety Report 8341846-7 (Version None)
Quarter: 2012Q2

REPORT INFORMATION
  Report Type: 
  Country: None (occurrence: None)
  Receive Date: 20120507
  Receipt Date: 20120426
  Transmission Date: 20120825
  Serious: Yes (Other)
  Sender: FDA-Public Use
  Company Number: US-ASTRAZENECA-2012SE27202

PATIENT
  Age: 53 Year
  Sex: Female

DRUGS (4)
  1. ACCOLATE [Suspect]
     Route: 048
  2. CALCIUM [Concomitant]
  3. ADVAIR DISKUS 100/50 [Concomitant]
  4. TOPROL-XL [Suspect]
     Route: 048

REACTIONS (4)
  - ANXIETY [None]
  - ASTHMA [None]
  - FALL [None]
  - HAND FRACTURE [None]
